FAERS Safety Report 22730595 (Version 9)
Quarter: 2024Q3

REPORT INFORMATION
  Report Type: Report from Study
  Country: BR (occurrence: BR)
  Receive Date: 20230720
  Receipt Date: 20240813
  Transmission Date: 20241016
  Serious: Yes (Hospitalization, Other)
  Sender: AKCEA THERAPEUTICS
  Company Number: BR-AKCEA THERAPEUTICS, INC.-2023IS001911

PATIENT

DRUGS (2)
  1. TEGSEDI [Suspect]
     Active Substance: INOTERSEN SODIUM
     Indication: Amyloidosis
     Dosage: UNK, 1 SYRINGE QW
     Route: 058
  2. TEGSEDI [Suspect]
     Active Substance: INOTERSEN SODIUM
     Dosage: UNK, 1 SYRINGE QW
     Route: 058
     Dates: start: 20151123, end: 20230712

REACTIONS (7)
  - Hepatosplenomegaly [Not Recovered/Not Resolved]
  - Abdominal pain [Recovered/Resolved]
  - Thrombocytopenia [Recovered/Resolved]
  - White blood cell count decreased [Recovered/Resolved]
  - Platelet count decreased [Recovered/Resolved]
  - Lymphadenopathy [Unknown]
  - Splenomegaly [Unknown]

NARRATIVE: CASE EVENT DATE: 20210101
